FAERS Safety Report 7400066-0 (Version None)
Quarter: 2011Q2

REPORT INFORMATION
  Report Type: 
  Country: None (occurrence: None)
  Receive Date: 20110407
  Receipt Date: 20110331
  Transmission Date: 20111010
  Serious: Yes (Death, Other)
  Sender: FDA-Public Use
  Company Number: AU-PFIZER INC-AU-WYE-G02474308

PATIENT
  Sex: Female

DRUGS (10)
  1. EFFEXOR [Suspect]
     Dosage: 112.5MG DAILY
     Dates: start: 20061101, end: 20070701
  2. LEXAPRO [Suspect]
     Indication: DEPRESSION
     Dosage: 5 MG, 1X/DAY
     Dates: start: 20071026, end: 20071028
  3. EFFEXOR [Suspect]
     Indication: DEPRESSION
     Dosage: 75 MG, UNK
     Dates: start: 20060401, end: 20061101
  4. ZOLOFT [Suspect]
     Dosage: UNK
     Dates: start: 19960101, end: 20040101
  5. EFFEXOR [Suspect]
     Dosage: 75 MG, 1X/DAY
     Dates: start: 20071017
  6. LEXAPRO [Suspect]
     Indication: ANXIETY DISORDER
     Dosage: 10 MG, 1X/DAY
     Dates: start: 20071029
  7. EFFEXOR [Suspect]
     Indication: ANXIETY DISORDER
     Dosage: 75.0 MG, 1X/DAY
     Dates: start: 20040801, end: 20060101
  8. ERYTHROMYCIN [Concomitant]
     Dosage: 20MG/G 2% GEL DAILY
  9. EFFEXOR [Suspect]
     Dosage: 150 MG, 1X/DAY
     Dates: start: 20070701, end: 20071016
  10. FISH OIL [Concomitant]
     Dosage: UNK

REACTIONS (43)
  - FEELING ABNORMAL [None]
  - ANHEDONIA [None]
  - DRUG INEFFECTIVE [None]
  - MEMORY IMPAIRMENT [None]
  - PANIC ATTACK [None]
  - MENTAL STATUS CHANGES [None]
  - INTENTIONAL SELF-INJURY [None]
  - AGITATION [None]
  - ANXIETY [None]
  - ROAD TRAFFIC ACCIDENT [None]
  - BIPOLAR II DISORDER [None]
  - SELF ESTEEM DECREASED [None]
  - OBSESSIVE THOUGHTS [None]
  - COMPLETED SUICIDE [None]
  - NERVOUSNESS [None]
  - MULTIPLE INJURIES [None]
  - RESTLESSNESS [None]
  - DRUG EFFECT DECREASED [None]
  - DISTURBANCE IN ATTENTION [None]
  - CRYING [None]
  - PSYCHOMOTOR HYPERACTIVITY [None]
  - CONDITION AGGRAVATED [None]
  - IMPAIRED DRIVING ABILITY [None]
  - CONFUSIONAL STATE [None]
  - MALAISE [None]
  - MOOD ALTERED [None]
  - DEPRESSION [None]
  - BIPOLAR DISORDER [None]
  - COGNITIVE DISORDER [None]
  - INSOMNIA [None]
  - SPEECH DISORDER [None]
  - IMPULSIVE BEHAVIOUR [None]
  - SUICIDAL IDEATION [None]
  - SEXUAL DYSFUNCTION [None]
  - DISTRACTIBILITY [None]
  - FEELING GUILTY [None]
  - FRUSTRATION [None]
  - DRUG WITHDRAWAL SYNDROME [None]
  - FEELING OF DESPAIR [None]
  - INTENTIONAL DRUG MISUSE [None]
  - NONSPECIFIC REACTION [None]
  - THINKING ABNORMAL [None]
  - UNEVALUABLE EVENT [None]
